FAERS Safety Report 4644868-2 (Version None)
Quarter: 2005Q2

REPORT INFORMATION
  Report Type: 
  Country: None (occurrence: None)
  Receive Date: 20050426
  Receipt Date: 20050401
  Transmission Date: 20051028
  Serious: Yes (Other)
  Sender: FDA-Public Use
  Company Number: US-AMGEN-US124483

PATIENT
  Sex: Female

DRUGS (1)
  1. ENBREL [Suspect]
     Indication: PSORIATIC ARTHROPATHY
     Dates: start: 20031001

REACTIONS (6)
  - FINGER DEFORMITY [None]
  - HEADACHE [None]
  - INJURY [None]
  - IRITIS [None]
  - LIMB INJURY [None]
  - OCULAR MYASTHENIA [None]
